FAERS Safety Report 9870996 (Version 2)
Quarter: 2014Q1

REPORT INFORMATION
  Report Type: Spontaneous
  Country: DE (occurrence: DE)
  Receive Date: 20140205
  Receipt Date: 20140205
  Transmission Date: 20141002
  Serious: Yes (Life-Threatening, Other)
  Sender: FDA-Public Use
  Company Number: DE-JNJFOC-20131204655

PATIENT
  Age: 89 Year
  Sex: Female
  Weight: 58 kg

DRUGS (13)
  1. XARELTO [Suspect]
     Indication: ATRIAL FIBRILLATION
     Route: 048
     Dates: start: 201309, end: 201311
  2. XARELTO [Suspect]
     Indication: CEREBROVASCULAR ACCIDENT PROPHYLAXIS
     Route: 048
     Dates: start: 201309, end: 201311
  3. AMIODARON [Concomitant]
     Route: 065
  4. PANTOPRAZOLE [Concomitant]
     Route: 065
  5. CARMEN [Concomitant]
     Route: 065
  6. BETAHISTIN [Concomitant]
     Route: 065
  7. SPIRONOLACTONE [Concomitant]
     Route: 065
  8. LASIX [Concomitant]
     Route: 065
  9. XIPAMID [Concomitant]
     Route: 065
  10. FURORESE [Concomitant]
     Route: 065
  11. METOPROLOL [Concomitant]
     Route: 065
  12. TRAMAL LONG [Concomitant]
     Route: 065
  13. RAMIPRIL [Concomitant]
     Route: 065

REACTIONS (4)
  - Intestinal haemorrhage [Recovered/Resolved]
  - Anal haemorrhage [Recovered/Resolved]
  - Large intestinal haemorrhage [Recovered/Resolved]
  - Renal impairment [Recovered/Resolved]
